FAERS Safety Report 25356855 (Version 2)
Quarter: 2025Q2

REPORT INFORMATION
  Report Type: Spontaneous
  Country: US (occurrence: US)
  Receive Date: 20250526
  Receipt Date: 20250610
  Transmission Date: 20250717
  Serious: Yes (Other)
  Sender: NOVO NORDISK
  Company Number: US-NOVOPROD-1434475

PATIENT
  Sex: Male

DRUGS (1)
  1. OZEMPIC [Suspect]
     Active Substance: SEMAGLUTIDE
     Indication: Liver transplant

REACTIONS (4)
  - Erectile dysfunction [Unknown]
  - Constipation [Unknown]
  - Product use in unapproved indication [Unknown]
  - Product use issue [Unknown]
